FAERS Safety Report 8227065-3 (Version None)
Quarter: 2012Q1

REPORT INFORMATION
  Report Type: 
  Country: None (occurrence: None)
  Receive Date: 20120322
  Receipt Date: 20120320
  Transmission Date: 20120608
  Serious: No
  Sender: FDA-Public Use
  Company Number: US-PFIZER INC-2012072782

PATIENT
  Sex: Female

DRUGS (10)
  1. METHIMAZOLE [Concomitant]
     Dosage: UNK
  2. DIAZEPAM [Concomitant]
     Dosage: UNK, AS NEEDED
  3. CHANTIX [Suspect]
     Indication: SMOKING CESSATION THERAPY
     Dosage: 0.5 MG, 1X/DAY
     Route: 048
     Dates: start: 20110801
  4. ATENOLOL [Concomitant]
     Dosage: UNK
  5. SEROQUEL [Concomitant]
     Dosage: UNK
  6. CHANTIX [Suspect]
     Dosage: 1 MG, 2X/DAY
     Route: 048
  7. LOSARTAN [Concomitant]
     Dosage: UNK
  8. LAMOTRIGINE [Concomitant]
     Dosage: UNK
  9. MOTRIN [Suspect]
     Indication: INTERVERTEBRAL DISC DEGENERATION
     Dosage: 800 MG, UNK
  10. MOTRIN [Suspect]
     Indication: INTERVERTEBRAL DISC PROTRUSION

REACTIONS (5)
  - INTERVERTEBRAL DISC DEGENERATION [None]
  - NECK PAIN [None]
  - PARAESTHESIA [None]
  - ABNORMAL DREAMS [None]
  - INTERVERTEBRAL DISC PROTRUSION [None]
